FAERS Safety Report 7478519-9 (Version None)
Quarter: 2011Q2

REPORT INFORMATION
  Report Type: 
  Country: None (occurrence: None)
  Receive Date: 20110513
  Receipt Date: 20100805
  Transmission Date: 20111010
  Serious: Yes (Other)
  Sender: FDA-Public Use
  Company Number: US-PFIZER INC-2010098905

PATIENT
  Age: 67 Year
  Sex: Male
  Weight: 90.703 kg

DRUGS (4)
  1. LISINOPRIL [Concomitant]
     Indication: ATRIAL FIBRILLATION
     Dosage: 5 MG, 1X/DAY
     Route: 048
  2. NEXIUM [Concomitant]
     Indication: GASTROOESOPHAGEAL REFLUX DISEASE
     Dosage: 20 MG, 1X/DAY
     Route: 048
  3. CELEBREX [Suspect]
     Indication: OSTEOARTHRITIS
     Dosage: 200 MG, 1X/DAY
     Route: 048
     Dates: end: 20100801
  4. TOPROL-XL [Concomitant]
     Indication: ATRIAL FIBRILLATION
     Dosage: 50 MG, 1X/DAY
     Route: 048

REACTIONS (4)
  - MUSCLE SPASMS [None]
  - ABDOMINAL PAIN UPPER [None]
  - ASTHENIA [None]
  - HEART RATE INCREASED [None]
